APPROVED DRUG PRODUCT: OMEPRAZOLE AND SODIUM BICARBONATE
Active Ingredient: OMEPRAZOLE; SODIUM BICARBONATE
Strength: 20MG;1.1GM
Dosage Form/Route: CAPSULE;ORAL
Application: A078966 | Product #001
Applicant: STRIDES PHARMA INTERNATIONAL AG
Approved: May 25, 2010 | RLD: No | RS: No | Type: DISCN